FAERS Safety Report 16626441 (Version 2)
Quarter: 2019Q3

REPORT INFORMATION
  Report Type: Spontaneous
  Country: DE (occurrence: DE)
  Receive Date: 20190724
  Receipt Date: 20190930
  Transmission Date: 20191004
  Serious: Yes (Other)
  Sender: FDA-Public Use
  Company Number: DE-BAUSCH-BL-2019-020737

PATIENT
  Age: 70 Year
  Sex: Female
  Weight: 53 kg

DRUGS (1)
  1. MOVIPREP [Suspect]
     Active Substance: ASCORBIC ACID\POLYETHYLENE GLYCOL 3350\POTASSIUM CHLORIDE\SODIUM ASCORBATE\SODIUM CHLORIDE\SODIUM SULFATE
     Indication: BOWEL PREPARATION
     Dosage: INTAKE WITH ADDITIONAL WATER IN THE TIME FROM 15-19 CLOCK
     Route: 065
     Dates: start: 20190626

REACTIONS (24)
  - Eructation [Unknown]
  - Skin discolouration [Unknown]
  - Cardiovascular disorder [Recovered/Resolved]
  - Dizziness [Unknown]
  - Abdominal pain [Unknown]
  - Language disorder [Unknown]
  - Muscle spasms [Unknown]
  - Tremor [Unknown]
  - Headache [Unknown]
  - Blood pressure increased [Unknown]
  - Skin erosion [Unknown]
  - Somnolence [Unknown]
  - Diarrhoea [Recovered/Resolved]
  - Dehydration [Unknown]
  - Cyanosis [Unknown]
  - Circulatory collapse [Unknown]
  - Retching [Unknown]
  - Abdominal discomfort [Unknown]
  - Allergic reaction to excipient [Unknown]
  - Nausea [Recovered/Resolved]
  - Feeling cold [Unknown]
  - Vomiting [Recovered/Resolved]
  - Hypersensitivity [Unknown]
  - Aversion [Unknown]

NARRATIVE: CASE EVENT DATE: 20190626
